FAERS Safety Report 4693797-7 (Version None)
Quarter: 2005Q2

REPORT INFORMATION
  Report Type: 
  Country: None (occurrence: None)
  Receive Date: 20050616
  Receipt Date: 20050607
  Transmission Date: 20051028
  Serious: Yes (Disabling, Other)
  Sender: FDA-Public Use
  Company Number: 2005-06-0411

PATIENT
  Age: 60 Year
  Sex: Male

DRUGS (3)
  1. INTERFERON ALPHA                 (LIKE INTRON A) [Suspect]
     Indication: CHRONIC MYELOID LEUKAEMIA
  2. LITHIUM [Suspect]
     Indication: BIPOLAR I DISORDER
  3. HYDROXYUREA [Concomitant]

REACTIONS (10)
  - BIPOLAR I DISORDER [None]
  - CEREBROVASCULAR DISORDER [None]
  - DRUG INEFFECTIVE [None]
  - FOOT AMPUTATION [None]
  - GANGRENE [None]
  - IMPAIRED HEALING [None]
  - LACUNAR INFARCTION [None]
  - PULMONARY HYPERTENSION [None]
  - SKIN ULCER [None]
  - VASCULITIS [None]
